FAERS Safety Report 8336717-6 (Version None)
Quarter: 2012Q2

REPORT INFORMATION
  Report Type: 
  Country: None (occurrence: None)
  Receive Date: 20120504
  Receipt Date: 20120423
  Transmission Date: 20120825
  Serious: Yes (Hospitalization)
  Sender: FDA-Public Use
  Company Number: US-JNJFOC-20120411785

PATIENT
  Sex: Female
  Weight: 63.2 kg

DRUGS (9)
  1. MESALAMINE [Concomitant]
  2. CALCIUM [Concomitant]
  3. PREDNISONE [Concomitant]
  4. OMEPRAZOLE [Concomitant]
  5. FOLIC ACID [Concomitant]
  6. PROZAC [Concomitant]
  7. INFLIXIMAB, RECOMBINANT [Suspect]
     Indication: COLITIS ULCERATIVE
     Route: 042
     Dates: start: 20110505, end: 20111005
  8. HUMIRA [Concomitant]
  9. FERROUS SULFATE TAB [Concomitant]

REACTIONS (1)
  - COLITIS ULCERATIVE [None]
